FAERS Safety Report 25265349 (Version 1)
Quarter: 2025Q2

REPORT INFORMATION
  Report Type: Spontaneous
  Country: IT (occurrence: IT)
  Receive Date: 20250502
  Receipt Date: 20250502
  Transmission Date: 20250717
  Serious: Yes (Other)
  Sender: VISTAPHARM
  Company Number: IT-VISTAPHARM-2025-IT-000034

PATIENT
  Age: 67 Year
  Sex: Male

DRUGS (1)
  1. METHADONE HYDROCHLORIDE [Suspect]
     Active Substance: METHADONE HYDROCHLORIDE
     Indication: Drug dependence

REACTIONS (1)
  - Medication crystals in urine present [Unknown]

NARRATIVE: CASE EVENT DATE: 20240501
